FAERS Safety Report 15724650 (Version 1)
Quarter: 2018Q4

REPORT INFORMATION
  Report Type: Report from Study
  Country: CN (occurrence: CN)
  Receive Date: 20181214
  Receipt Date: 20181214
  Transmission Date: 20190205
  Serious: Yes (Hospitalization, Other)
  Sender: FDA-Public Use
  Company Number: PHHY2017CN144612

PATIENT
  Age: 58 Year
  Sex: Male

DRUGS (3)
  1. BERBERINE HYDROCHLORIDE [Concomitant]
     Active Substance: BERBERINE
     Indication: PRODUCT USED FOR UNKNOWN INDICATION
     Route: 065
  2. MYFORTIC [Suspect]
     Active Substance: MYCOPHENOLATE SODIUM
     Indication: RENAL TRANSPLANT
     Dosage: UNK
     Route: 065
     Dates: start: 20170820, end: 20170904
  3. BASILIXIMAB [Suspect]
     Active Substance: BASILIXIMAB
     Indication: PRODUCT USED FOR UNKNOWN INDICATION
     Route: 065

REACTIONS (16)
  - Complications of transplanted kidney [Recovered/Resolved]
  - Blood creatinine increased [Recovering/Resolving]
  - Haemoglobin decreased [Unknown]
  - Low density lipoprotein increased [Unknown]
  - Lymphocyte count decreased [Recovered/Resolved]
  - Diabetes mellitus [Recovered/Resolved]
  - Neutrophil count increased [Recovering/Resolving]
  - Blood glucose increased [Recovering/Resolving]
  - C-reactive protein increased [Recovering/Resolving]
  - Cough [Recovered/Resolved]
  - Blood albumin decreased [Recovering/Resolving]
  - Protein urine present [Unknown]
  - Procedural pain [Recovered/Resolved]
  - Blood urine present [Recovering/Resolving]
  - White blood cell count increased [Recovering/Resolving]
  - Blood urea increased [Recovering/Resolving]

NARRATIVE: CASE EVENT DATE: 20170821
